FAERS Safety Report 7372994-6 (Version None)
Quarter: 2011Q1

REPORT INFORMATION
  Report Type: 
  Country: None (occurrence: None)
  Receive Date: 20110324
  Receipt Date: 20110316
  Transmission Date: 20110831
  Serious: Yes (Death, Life-Threatening, Other)
  Sender: FDA-Public Use
  Company Number: JP-GENZYME-THYM-1001824

PATIENT
  Sex: Male
  Weight: 60 kg

DRUGS (12)
  1. FLUDARA [Suspect]
     Indication: MYELOFIBROSIS
     Dosage: UNK
     Route: 065
     Dates: start: 20100113, end: 20100118
  2. MELPHALAN [Concomitant]
     Indication: MYELOFIBROSIS
     Dosage: UNK
     Dates: start: 20100113, end: 20100114
  3. LEVOFLOXACIN [Concomitant]
     Indication: INFECTION PROPHYLAXIS
     Dosage: UNK
     Dates: start: 20100120, end: 20100202
  4. METOCLOPRAMIDE [Concomitant]
     Indication: PROPHYLAXIS OF NAUSEA AND VOMITING
     Dosage: UNK
     Dates: start: 20100125, end: 20100127
  5. URSODIOL [Concomitant]
     Indication: PROPHYLAXIS
     Dosage: UNK
     Dates: start: 20100120, end: 20100202
  6. MICAFUNGIN SODIUM [Concomitant]
     Indication: INFECTION PROPHYLAXIS
     Dosage: UNK
     Dates: start: 20100116, end: 20100202
  7. FREEZE-DRIED SULPHONATED HUMAN [Concomitant]
     Indication: MYELOFIBROSIS
     Dosage: UNK
     Dates: start: 20100119, end: 20100203
  8. METHOTREXATE [Concomitant]
     Indication: PROPHYLAXIS AGAINST GRAFT VERSUS HOST DISEASE
     Dosage: UNK
     Dates: start: 20100121, end: 20100131
  9. TACROLIMUS [Concomitant]
     Indication: PROPHYLAXIS AGAINST GRAFT VERSUS HOST DISEASE
     Dosage: UNK
     Dates: start: 20100119, end: 20100203
  10. THYMOGLOBULIN [Suspect]
     Indication: BONE MARROW CONDITIONING REGIMEN
     Dosage: 150 MG, QD
     Route: 042
     Dates: start: 20100115, end: 20100116
  11. METHYLPREDNISOLONE SODIUM SUCCINATE [Concomitant]
     Indication: PREMEDICATION
     Dosage: UNK
     Dates: start: 20100115, end: 20100116
  12. FILGRASTIM [Concomitant]
     Indication: INFECTION PROPHYLAXIS
     Dosage: UNK
     Dates: start: 20100127, end: 20100226

REACTIONS (7)
  - PNEUMONIA [None]
  - RENAL FAILURE ACUTE [None]
  - CARDIAC FAILURE [None]
  - VIRAL HAEMORRHAGIC CYSTITIS [None]
  - STAPHYLOCOCCAL SEPSIS [None]
  - ENGRAFT FAILURE [None]
  - PNEUMONIA BACTERIAL [None]
